FAERS Safety Report 20109000 (Version 3)
Quarter: 2022Q1

REPORT INFORMATION
  Report Type: Spontaneous
  Country: FI (occurrence: FI)
  Receive Date: 20211124
  Receipt Date: 20220105
  Transmission Date: 20220423
  Serious: Yes (Hospitalization, Other)
  Sender: FDA-Public Use
  Company Number: FI-MYLANLABS-2021M1085802

PATIENT
  Age: 59 Year
  Sex: Female

DRUGS (21)
  1. CLOZAPINE [Suspect]
     Active Substance: CLOZAPINE
     Indication: Schizoaffective disorder
     Dosage: UNK
     Dates: start: 202110, end: 2021
  2. CLOZAPINE [Suspect]
     Active Substance: CLOZAPINE
     Dosage: 200 MILLIGRAM, QD
     Dates: start: 2021, end: 202111
  3. CLOZAPINE [Suspect]
     Active Substance: CLOZAPINE
     Dosage: UNK
     Dates: start: 1998, end: 1998
  4. CLOZAPINE [Suspect]
     Active Substance: CLOZAPINE
     Dosage: START DOSE 25 MG EVERY EVENING, TITRATED UP TO 200 MG
     Route: 048
     Dates: start: 20211018, end: 20211103
  5. CLOZAPINE [Suspect]
     Active Substance: CLOZAPINE
     Dosage: 200 MILLIGRAM, QD
     Route: 048
     Dates: start: 20211103, end: 20211112
  6. ARIPIPRAZOLE [Suspect]
     Active Substance: ARIPIPRAZOLE
     Indication: Schizoaffective disorder
     Dosage: UNK
     Dates: start: 202111
  7. OLANZAPINE [Suspect]
     Active Substance: OLANZAPINE
     Indication: Schizoaffective disorder
     Dosage: 1 + 2 TABLETS DAILY
     Dates: start: 2010, end: 20211018
  8. OLANZAPINE [Suspect]
     Active Substance: OLANZAPINE
     Dosage: 1 + 1 TABLETS DAILY
     Dates: start: 20211019, end: 20211026
  9. OLANZAPINE [Suspect]
     Active Substance: OLANZAPINE
     Dosage: 1 TABLET, EVERY EVENING DAILY
     Dates: start: 20211027, end: 20211028
  10. OLANZAPINE [Suspect]
     Active Substance: OLANZAPINE
     Dosage: 30 MILLIGRAM, QD
     Dates: start: 2010
  11. LITHIUM CARBONATE [Suspect]
     Active Substance: LITHIUM CARBONATE
     Indication: Schizoaffective disorder
     Dosage: 1 + 2 DOSES, DALIY
     Dates: start: 2011, end: 20211109
  12. LITHIUM CARBONATE [Suspect]
     Active Substance: LITHIUM CARBONATE
     Dosage: 1 + 1.5 DOSES
     Dates: start: 20211110
  13. LITHIUM CARBONATE [Suspect]
     Active Substance: LITHIUM CARBONATE
     Dosage: 300 MILLIGRAM (300 MILLIGRAM 300 MG 1+1?)
     Dates: start: 20211110
  14. QUETIAPINE FUMARATE [Suspect]
     Active Substance: QUETIAPINE FUMARATE
     Indication: Schizoaffective disorder
     Dosage: UNK
     Dates: start: 202111
  15. ZUCLOPENTHIXOL [Suspect]
     Active Substance: ZUCLOPENTHIXOL
     Indication: Insomnia
     Dosage: 10 MILLIGRAM
     Dates: start: 20211007, end: 20211026
  16. OLANZAPINE [Suspect]
     Active Substance: OLANZAPINE
     Indication: Schizoaffective disorder
     Dosage: 30 MILLIGRAM, QD
  17. TENOXICAM [Concomitant]
     Active Substance: TENOXICAM
     Indication: Product used for unknown indication
     Dosage: 0.5 ? 1 DOSES, ONCE A DAY WHEN NEEDED
     Dates: start: 20210924, end: 20210927
  18. TENOXICAM [Concomitant]
     Active Substance: TENOXICAM
     Dosage: 0.5 ? 2 DOSES, ONCE A DAY WHEN NEEDED
     Dates: start: 20210928
  19. TENOXICAM [Concomitant]
     Active Substance: TENOXICAM
     Dosage: 20 MILLIGRAM 20 MG, ?-2X1, AS NEEDED
     Dates: start: 20210928
  20. TENOXICAM [Concomitant]
     Active Substance: TENOXICAM
     Dosage: 20 MILLIGRAM 20 MG, ?-1X1, AS NEEDED
     Dates: start: 20210924
  21. METFORMIN HYDROCHLORIDE [Concomitant]
     Active Substance: METFORMIN HYDROCHLORIDE
     Indication: Product used for unknown indication
     Dosage: 500 MILLIGRAM, QD
     Dates: start: 2019

REACTIONS (6)
  - Delusion [Not Recovered/Not Resolved]
  - Insomnia [Not Recovered/Not Resolved]
  - Eosinophilia [Unknown]
  - White blood cell count increased [Unknown]
  - Off label use [Unknown]
  - Drug ineffective [Unknown]

NARRATIVE: CASE EVENT DATE: 19980101
